FAERS Safety Report 9936997 (Version 1)
Quarter: 2014Q1

REPORT INFORMATION
  Report Type: Spontaneous
  Country: US (occurrence: None)
  Receive Date: 20140122
  Receipt Date: 20140122
  Transmission Date: 20141002
  Serious: No
  Sender: FDA-Public Use
  Company Number: AP356-00150-SPO-US

PATIENT
  Sex: Male

DRUGS (2)
  1. BELVIQ (LORCASERIN HYDROCHLORIDE) [Suspect]
     Dates: start: 201310, end: 20131008
  2. SSRI THERAPY [Concomitant]

REACTIONS (5)
  - Dysarthria [None]
  - Gait disturbance [None]
  - Feeling abnormal [None]
  - Incoherent [None]
  - Somnolence [None]
